FAERS Safety Report 6512285-6 (Version None)
Quarter: 2009Q4

REPORT INFORMATION
  Report Type: 
  Country: None (occurrence: None)
  Receive Date: 20091222
  Receipt Date: 20090713
  Transmission Date: 20100525
  Serious: No
  Sender: FDA-Public Use
  Company Number: US-ASTRAZENECA-2009UW19522

PATIENT
  Age: 71 Year
  Sex: Female
  Weight: 86.2 kg

DRUGS (12)
  1. CRESTOR [Suspect]
     Route: 048
  2. ASIPHEX [Concomitant]
  3. NORVASC [Concomitant]
  4. CLARITIN [Concomitant]
  5. ASPIRIN [Concomitant]
  6. CARAFATE [Concomitant]
  7. ENALAPRIL MALEATE [Concomitant]
  8. PLAVIX [Concomitant]
  9. LISINOPRIL [Concomitant]
  10. TOPROL-XL [Concomitant]
  11. FLONASE [Concomitant]
  12. OMEPRAZOLE [Concomitant]

REACTIONS (1)
  - DIARRHOEA [None]
